FAERS Safety Report 8408523 (Version 2)
Quarter: 2014Q1

REPORT INFORMATION
  Report Type: Spontaneous
  Country: US (occurrence: US)
  Receive Date: 20120216
  Receipt Date: 20140117
  Transmission Date: 20141002
  Serious: Yes (Hospitalization, Other)
  Sender: FDA-Public Use
  Company Number: US-BAYER-2012-014726

PATIENT
  Age: 35 Year
  Sex: Female

DRUGS (6)
  1. YAZ [Suspect]
     Dosage: UNK
     Dates: start: 200705, end: 200902
  2. SYNTHROID [Concomitant]
     Dosage: 50 MCG DAILY
     Dates: start: 20070507
  3. WELLBUTRIN XL [Concomitant]
     Dosage: 300 MG, QD
     Dates: start: 20070507
  4. PREVACID [Concomitant]
     Dosage: UNK
     Dates: start: 20070731
  5. ZANTAC [Concomitant]
     Dosage: 75 MG, UNK
     Dates: start: 20070731
  6. VICODIN [Concomitant]
     Indication: PAIN

REACTIONS (7)
  - Gallbladder disorder [None]
  - Cholecystitis acute [None]
  - Pain [None]
  - Gastrointestinal disorder [None]
  - Anxiety [None]
  - Psychological trauma [None]
  - Post cholecystectomy syndrome [None]
